FAERS Safety Report 6848918-4 (Version None)
Quarter: 2010Q3

REPORT INFORMATION
  Report Type: 
  Country: None (occurrence: None)
  Receive Date: 20100716
  Receipt Date: 20071218
  Transmission Date: 20110219
  Serious: No
  Sender: FDA-Public Use
  Company Number: US-PFIZER INC-2007076471

PATIENT
  Sex: Female
  Weight: 73 kg

DRUGS (10)
  1. CHANTIX [Suspect]
     Indication: SMOKING CESSATION THERAPY
     Dates: start: 20070501, end: 20070801
  2. LEVOTHYROXINE SODIUM [Concomitant]
  3. ENALAPRIL MALEATE [Concomitant]
  4. HYDROCHLOROTHIAZIDE [Concomitant]
  5. LOVASTATIN [Concomitant]
  6. RANITIDINE [Concomitant]
  7. ACETYLSALICYLIC ACID [Concomitant]
  8. NIACIN [Concomitant]
  9. VITAMINS [Concomitant]
  10. LECITHIN [Concomitant]

REACTIONS (3)
  - NAUSEA [None]
  - ORAL HERPES [None]
  - ORAL PAIN [None]
